FAERS Safety Report 6758870-8 (Version None)
Quarter: 2010Q2

REPORT INFORMATION
  Report Type: 
  Country: None (occurrence: None)
  Receive Date: 20100607
  Receipt Date: 20100524
  Transmission Date: 20101027
  Serious: Yes (Hospitalization, Other)
  Sender: FDA-Public Use
  Company Number: PHEH2009US05832

PATIENT
  Sex: Male
  Weight: 67.27 kg

DRUGS (2)
  1. EXJADE [Suspect]
     Indication: IRON METABOLISM DISORDER
     Dosage: 1250MG DAILY
     Route: 048
     Dates: start: 20090514, end: 20090601
  2. EXJADE [Suspect]
     Dosage: 1625 MG DAILY
     Route: 048
     Dates: start: 20090420

REACTIONS (7)
  - ALTERED STATE OF CONSCIOUSNESS [None]
  - DIARRHOEA [None]
  - LABORATORY TEST ABNORMAL [None]
  - ROAD TRAFFIC ACCIDENT [None]
  - TENDONITIS [None]
  - VOMITING [None]
  - WEIGHT DECREASED [None]
